FAERS Safety Report 6132554-1 (Version None)
Quarter: 2009Q1

REPORT INFORMATION
  Report Type: 
  Country: None (occurrence: None)
  Receive Date: 20090325
  Receipt Date: 20090319
  Transmission Date: 20090719
  Serious: Yes (Other)
  Sender: FDA-Public Use
  Company Number: US-MERCK-0902USA03753

PATIENT
  Age: 6 Year
  Sex: Male
  Weight: 20 kg

DRUGS (5)
  1. SINGULAIR [Suspect]
     Indication: HYPERSENSITIVITY
     Route: 048
     Dates: end: 20090101
  2. SINGULAIR [Suspect]
     Indication: ASTHMA
     Route: 048
     Dates: end: 20090101
  3. CLARITIN [Concomitant]
     Indication: HYPERSENSITIVITY
     Route: 065
  4. RHINOCORT [Concomitant]
     Indication: ASTHMA
     Route: 065
  5. XOPENEX [Concomitant]
     Indication: ASTHMA
     Route: 065

REACTIONS (6)
  - AGGRESSION [None]
  - ANGER [None]
  - DEPRESSION [None]
  - IRRITABILITY [None]
  - SOCIAL AVOIDANT BEHAVIOUR [None]
  - SUICIDAL IDEATION [None]
